FAERS Safety Report 4437130-4 (Version None)
Quarter: 2004Q3

REPORT INFORMATION
  Report Type: 
  Country: None (occurrence: None)
  Receive Date: 20040726
  Receipt Date: 20040322
  Transmission Date: 20050211
  Serious: No
  Sender: FDA-Public Use
  Company Number: USA040362850

PATIENT
  Age: 83 Year
  Sex: Male

DRUGS (4)
  1. FORTEO [Suspect]
     Indication: OSTEOPOROSIS
     Dates: start: 20040318, end: 20040322
  2. PROZAC [Concomitant]
  3. ACCUPRIL [Concomitant]
  4. COUMADIN [Concomitant]

REACTIONS (4)
  - ASTHENIA [None]
  - BLOOD SODIUM [None]
  - HEART RATE INCREASED [None]
  - MUSCLE CRAMP [None]
